FAERS Safety Report 15960734 (Version 1)
Quarter: 2019Q1

REPORT INFORMATION
  Report Type: Report from Study
  Country: US (occurrence: US)
  Receive Date: 20190214
  Receipt Date: 20190214
  Transmission Date: 20190417
  Serious: Yes (Other)
  Sender: FDA-Public Use
  Company Number: US-BIOGEN-2019BI00696121

PATIENT
  Sex: Male

DRUGS (1)
  1. TYSABRI [Suspect]
     Active Substance: NATALIZUMAB
     Indication: PRODUCT USED FOR UNKNOWN INDICATION
     Route: 042
     Dates: start: 2017

REACTIONS (5)
  - Fall [Recovered/Resolved]
  - Therapeutic response shortened [Unknown]
  - Pain [Unknown]
  - Cervical vertebral fracture [Unknown]
  - Dysgraphia [Unknown]
